FAERS Safety Report 10877369 (Version 2)
Quarter: 2017Q3

REPORT INFORMATION
  Report Type: Spontaneous
  Country: US (occurrence: US)
  Receive Date: 20150302
  Receipt Date: 20170727
  Transmission Date: 20171127
  Serious: Yes (Hospitalization)
  Sender: FDA-Public Use
  Company Number: US-CIPLA LTD.-2015US01506

PATIENT

DRUGS (24)
  1. GEMCITABINE [Suspect]
     Active Substance: GEMCITABINE\GEMCITABINE HYDROCHLORIDE
     Indication: ADENOCARCINOMA PANCREAS
     Dosage: UNK
     Route: 065
  2. FLUCONAZOLE. [Suspect]
     Active Substance: FLUCONAZOLE
     Indication: ANTIBIOTIC THERAPY
     Dosage: 400 MG, ONE DOSE, DAY 6
     Route: 042
  3. FLUCONAZOLE. [Suspect]
     Active Substance: FLUCONAZOLE
     Dosage: 200 MG, QD, DAYS 7-10
     Route: 042
  4. AMPHOTERICIN B. [Suspect]
     Active Substance: AMPHOTERICIN B
     Indication: ANTIBIOTIC THERAPY
     Dosage: 390 MG, EVERY 24 HRS, DAY 16-29
     Route: 042
  5. CEFAZOLIN [Suspect]
     Active Substance: CEFAZOLIN
     Indication: ANTIBIOTIC THERAPY
     Dosage: 1 G, ONE DOSE, DAY 5
     Route: 042
  6. CISPLATIN. [Suspect]
     Active Substance: CISPLATIN
     Indication: ADENOCARCINOMA PANCREAS
     Dosage: UNK, TWO CYCLES
     Route: 065
  7. VANCOMYCIN [Suspect]
     Active Substance: VANCOMYCIN
     Dosage: 1.5 G, EVERY 12 HRS, DAY 11-15
     Route: 042
  8. HYDROCORTISONE. [Suspect]
     Active Substance: HYDROCORTISONE
     Dosage: 50 MG, BID, DAY 24
     Route: 065
  9. HYDROCORTISONE. [Suspect]
     Active Substance: HYDROCORTISONE
     Dosage: 50 MG, DAILY, DAY 25-26
     Route: 065
  10. HYDROCORTISONE. [Suspect]
     Active Substance: HYDROCORTISONE
     Dosage: 100 MG, TID, DAY 20-22
     Route: 065
  11. NEUPOGEN [Suspect]
     Active Substance: FILGRASTIM
     Indication: ANTIBIOTIC THERAPY
     Dosage: 480 MCG, QD, DAY 6-12
     Route: 058
  12. CEFEPIME [Suspect]
     Active Substance: CEFEPIME HYDROCHLORIDE
     Indication: ANTIBIOTIC THERAPY
     Dosage: 2 G, EVERY 8 HRS, DAY 5-6
     Route: 042
  13. CASPOFUNGIN [Suspect]
     Active Substance: CASPOFUNGIN
     Dosage: 50 MG, EVERY 24 HRS, DAYS 11-13
     Route: 042
  14. CAPECITABINE. [Suspect]
     Active Substance: CAPECITABINE
     Indication: ADENOCARCINOMA PANCREAS
     Dosage: UNK, DAILY
     Route: 065
  15. ITRACONAZOLE. [Suspect]
     Active Substance: ITRACONAZOLE
     Indication: HISTOPLASMOSIS DISSEMINATED
     Dosage: 200 MG, DAILY, DAY 15-16, 29-41
     Route: 048
  16. VORICONAZOLE. [Suspect]
     Active Substance: VORICONAZOLE
     Indication: ANTIBIOTIC THERAPY
     Dosage: 470 MG, EVERY 12 HRS, DAY 13-14
     Route: 042
  17. VORICONAZOLE. [Suspect]
     Active Substance: VORICONAZOLE
     Dosage: 310 MG, EVERY 12 HRS, DAY 14-15
     Route: 042
  18. DEMECLOCYCLINE [Suspect]
     Active Substance: DEMECLOCYCLINE
     Indication: ANTIBIOTIC THERAPY
     Dosage: 300 MG, EVERY 6 HRS, DAY 12-39
     Route: 048
  19. ERLOTINIB [Suspect]
     Active Substance: ERLOTINIB
     Indication: ADENOCARCINOMA PANCREAS
     Dosage: 50 MG, BID, DAY 2-5
     Route: 048
  20. VANCOMYCIN [Suspect]
     Active Substance: VANCOMYCIN
     Indication: ANTIBIOTIC THERAPY
     Dosage: 1 G, EVERY 12 HRS, DAY 5-11
     Route: 042
  21. MEROPENEM. [Suspect]
     Active Substance: MEROPENEM
     Indication: ANTIBIOTIC THERAPY
     Dosage: 1 G, EVERY 8 HRS, DAY 6-20
     Route: 042
  22. CIPROFLOXACIN. [Suspect]
     Active Substance: CIPROFLOXACIN
     Indication: ANTIBIOTIC THERAPY
     Dosage: 400 MG, EVERY 12 HRS, DAYS 5-20
     Route: 042
  23. HYDROCORTISONE. [Suspect]
     Active Substance: HYDROCORTISONE
     Dosage: 100 MG, BID, DAY 23
     Route: 065
  24. CASPOFUNGIN [Suspect]
     Active Substance: CASPOFUNGIN
     Indication: ANTIBIOTIC THERAPY
     Dosage: 70 MG, ONE DOSE, DAY10
     Route: 042

REACTIONS (7)
  - Sepsis [Unknown]
  - Febrile neutropenia [Unknown]
  - Histoplasmosis disseminated [Unknown]
  - Non-small cell lung cancer stage II [Unknown]
  - Hepatic enzyme increased [Recovering/Resolving]
  - Brown-Sequard syndrome [Unknown]
  - Weight decreased [Unknown]
